FAERS Safety Report 15320093 (Version 1)
Quarter: 2018Q3

REPORT INFORMATION
  Report Type: Spontaneous
  Country: US (occurrence: US)
  Receive Date: 20180820
  Receipt Date: 20180820
  Transmission Date: 20181010
  Serious: Yes (Hospitalization)
  Sender: FDA-Public Use
  Company Number: None

PATIENT
  Age: 51 Year
  Sex: Female
  Weight: 55 kg

DRUGS (5)
  1. CEFEPIME [Concomitant]
     Active Substance: CEFEPIME HYDROCHLORIDE
  2. YESCARTA [Suspect]
     Active Substance: AXICABTAGENE CILOLEUCEL
     Indication: DIFFUSE LARGE B-CELL LYMPHOMA
     Route: 042
     Dates: start: 20180214, end: 20180214
  3. ALLOPURINOL 300MG [Concomitant]
     Active Substance: ALLOPURINOL
     Dates: start: 20180214, end: 20180225
  4. ACYCLOVIR. [Concomitant]
     Active Substance: ACYCLOVIR
     Dates: start: 20180208, end: 20180214
  5. NEUPOGEN PRN ANC {500 [Concomitant]

REACTIONS (9)
  - Tachycardia [None]
  - Blood pressure decreased [None]
  - Neurological symptom [None]
  - Toxicity to various agents [None]
  - Febrile neutropenia [None]
  - Drug ineffective [None]
  - Headache [None]
  - Pyrexia [None]
  - Cytokine release syndrome [None]

NARRATIVE: CASE EVENT DATE: 20180214
